FAERS Safety Report 7598766-5 (Version None)
Quarter: 2011Q3

REPORT INFORMATION
  Report Type: 
  Country: None (occurrence: None)
  Receive Date: 20110711
  Receipt Date: 20110328
  Transmission Date: 20111222
  Serious: No
  Sender: FDA-Public Use
  Company Number: US-BIOGENIDEC-2011BI007058

PATIENT
  Age: 39 Year
  Sex: Female

DRUGS (2)
  1. TYSABRI [Suspect]
     Indication: MULTIPLE SCLEROSIS
     Route: 042
     Dates: start: 20110203
  2. LEVAQUIN [Concomitant]
     Indication: PRODUCT USED FOR UNKNOWN INDICATION

REACTIONS (17)
  - INFLUENZA LIKE ILLNESS [None]
  - DRUG HYPERSENSITIVITY [None]
  - HEADACHE [None]
  - LYMPHADENOPATHY [None]
  - URINARY TRACT INFECTION [None]
  - DYSPNOEA [None]
  - URINARY INCONTINENCE [None]
  - ABDOMINAL PAIN UPPER [None]
  - MULTIPLE SCLEROSIS RELAPSE [None]
  - HYPOAESTHESIA [None]
  - SKIN ULCER [None]
  - INFLUENZA [None]
  - MOUTH ULCERATION [None]
  - BACK PAIN [None]
  - CYSTITIS [None]
  - PAIN [None]
  - SKIN LESION [None]
